FAERS Safety Report 6253859-X (Version None)
Quarter: 2009Q3

REPORT INFORMATION
  Report Type: 
  Country: None (occurrence: None)
  Receive Date: 20090702
  Receipt Date: 20070705
  Transmission Date: 20100115
  Serious: Yes (Other)
  Sender: FDA-Public Use
  Company Number: US-ASTRAZENECA-2006UW08891

PATIENT
  Age: 52 Year
  Sex: Male
  Weight: 112.5 kg

DRUGS (13)
  1. SEROQUEL [Suspect]
     Indication: DEPRESSION
     Dosage: 25 MG - 400 MG
     Route: 048
     Dates: start: 20030423
  2. SEROQUEL [Suspect]
     Route: 048
     Dates: start: 20030101, end: 20040101
  3. RISPERDAL [Suspect]
     Indication: DEPRESSION
     Dosage: 1 MG - 3 MG
     Dates: start: 19980601, end: 20021201
  4. RISPERDAL [Suspect]
     Dates: start: 19980625
  5. ZYPREXA [Suspect]
     Indication: DEPRESSION
     Dosage: 5 MG - 20 MG
     Dates: start: 19980801, end: 20020601
  6. ZYPREXA [Suspect]
     Route: 048
     Dates: start: 19980818
  7. ATENOLOL/ HYDROCHLOROTHIAZIDE [Concomitant]
     Dosage: 50/25 MG, DAILY
     Dates: start: 20030630
  8. WELLBUTRIN [Concomitant]
     Indication: DEPRESSION
     Dosage: 100 MG - 300 MG
     Route: 048
     Dates: start: 19980818
  9. REMERON SOLUTION TABLET [Concomitant]
     Indication: DEPRESSION
     Route: 048
     Dates: start: 20030423
  10. DEPAKENE [Concomitant]
     Indication: ANXIETY
     Dates: start: 20030423
  11. ASPIRIN [Concomitant]
     Route: 048
     Dates: start: 20030423
  12. TENORETIC 100 [Concomitant]
     Dates: start: 20031001
  13. ABILIFY [Concomitant]
     Dates: start: 20030423

REACTIONS (6)
  - DIABETES MELLITUS [None]
  - DIABETIC NEPHROPATHY [None]
  - HYPERGLYCAEMIA [None]
  - NEUROPATHY PERIPHERAL [None]
  - PERIPHERAL SENSORY NEUROPATHY [None]
  - TYPE 2 DIABETES MELLITUS [None]
